FAERS Safety Report 17604938 (Version 1)
Quarter: 2020Q1

REPORT INFORMATION
  Report Type: Spontaneous
  Country: US (occurrence: US)
  Receive Date: 20200330
  Receipt Date: 20200330
  Transmission Date: 20200409
  Serious: No
  Sender: FDA-Public Use
  Company Number: None

PATIENT
  Sex: Female

DRUGS (1)
  1. BOTOX [Suspect]
     Active Substance: ONABOTULINUMTOXINA
     Indication: MIGRAINE
     Dosage: ?          OTHER STRENGTH:200U/VL;OTHER FREQUENCY:ONCE EVERY 3 MONTH;?
     Route: 030
     Dates: start: 202001, end: 20200323

REACTIONS (4)
  - Injection site swelling [None]
  - Injection site pain [None]
  - Hypersensitivity [None]
  - Injection site pruritus [None]
